FAERS Safety Report 9674986 (Version 1)
Quarter: 2013Q4

REPORT INFORMATION
  Report Type: Report from Study
  Country: FR (occurrence: FR)
  Receive Date: 20131107
  Receipt Date: 20131107
  Transmission Date: 20140711
  Serious: Yes (Hospitalization)
  Sender: FDA-Public Use
  Company Number: FR-ASTELLAS-2013EU009651

PATIENT
  Age: 87 Year
  Sex: Male
  Weight: 78 kg

DRUGS (10)
  1. ENZALUTAMIDE [Suspect]
     Indication: PROSTATE CANCER
     Dosage: 160 MG/DAY, UNKNOWN/D
     Route: 048
     Dates: start: 20130320, end: 20130418
  2. ENZALUTAMIDE [Suspect]
     Dosage: 80 MG/DAY, UNKNOWN/D
     Route: 048
     Dates: start: 20130426, end: 20130523
  3. ENZALUTAMIDE [Suspect]
     Dosage: 40 MG/DAY, UNKNOWN/D
     Route: 048
     Dates: start: 20130614, end: 20130809
  4. ENZALUTAMIDE [Suspect]
     Dosage: 80 MG/DAY, UNKNOWN/D
     Route: 048
     Dates: start: 20130809, end: 20131008
  5. SINTROM [Concomitant]
     Dosage: UNK
     Route: 065
  6. FUROSEMIDE [Concomitant]
     Dosage: 80 MG/DAY, UNKNOWN/D
     Route: 065
  7. RAMIPRIL [Concomitant]
     Dosage: 2.5 MG/DAY, UNKNOWN/D
     Route: 065
  8. NEBIVOLOL [Concomitant]
     Dosage: 5 MG, UNKNOWN/D
     Route: 065
  9. ROSUVASTATINE [Concomitant]
     Dosage: 5 MG, UNKNOWN/D
     Route: 065
  10. CORTANCYL [Concomitant]
     Dosage: 5 MG/DAY, UNKNOWN/D
     Route: 065

REACTIONS (3)
  - Drug ineffective [Unknown]
  - Cardiac failure [Recovered/Resolved]
  - Lung disorder [Recovered/Resolved]
